FAERS Safety Report 21512850 (Version 1)
Quarter: 2022Q4

REPORT INFORMATION
  Report Type: Spontaneous
  Country: US (occurrence: None)
  Receive Date: 20221026
  Receipt Date: 20221026
  Transmission Date: 20230113
  Serious: Yes (Other)
  Sender: FDA-Public Use
  Company Number: None

PATIENT
  Age: 27 Year
  Sex: Female

DRUGS (1)
  1. GLUTATHIONE [Suspect]
     Active Substance: GLUTATHIONE
     Indication: Skin disorder
     Dosage: OTHER ROUTE : DRIP/INJECT;?
     Route: 050
     Dates: start: 20220419

REACTIONS (4)
  - Infusion related reaction [None]
  - Headache [None]
  - Dizziness [None]
  - Dyspnoea [None]

NARRATIVE: CASE EVENT DATE: 20220419
